FAERS Safety Report 5815613-X (Version None)
Quarter: 2008Q3

REPORT INFORMATION
  Report Type: 
  Country: None (occurrence: None)
  Receive Date: 20080716
  Receipt Date: 20080702
  Transmission Date: 20090109
  Serious: Yes (Other)
  Sender: FDA-Public Use
  Company Number: 230200M08USA

PATIENT
  Age: 50 Year
  Sex: Female

DRUGS (4)
  1. REBIF [Suspect]
     Indication: MULTIPLE SCLEROSIS
     Dosage: 44 MCG, 3 IN 1 WEEKS, SUBCUTANEOUS
     Route: 058
     Dates: start: 20061201
  2. PAIN PUMP(ALL OTHER THERAPEUTIC PRODUCTS) [Concomitant]
  3. CYMBALTA [Concomitant]
  4. ARICEPT [Concomitant]

REACTIONS (2)
  - BACK DISORDER [None]
  - URINARY TRACT DISORDER [None]
